FAERS Safety Report 4279986-4 (Version None)
Quarter: 2004Q1

REPORT INFORMATION
  Report Type: 
  Country: None (occurrence: None)
  Receive Date: 20040126
  Receipt Date: 20040108
  Transmission Date: 20041129
  Serious: Yes (Death, Life-Threatening)
  Sender: FDA-Public Use
  Company Number: 2004AP00086

PATIENT
  Age: 76 Year
  Sex: Male

DRUGS (10)
  1. IRESSA [Suspect]
     Indication: LUNG ADENOCARCINOMA
     Dosage: 250 MG DAILY PO
     Route: 048
     Dates: start: 20030802, end: 20030811
  2. RINDERON [Suspect]
     Indication: TUMOUR ASSOCIATED FEVER
     Dosage: 4 MG DAILY
     Dates: start: 20030804, end: 20030809
  3. RINDERON [Suspect]
     Indication: TUMOUR ASSOCIATED FEVER
     Dosage: 8 MG DAILY
     Dates: start: 20030810
  4. ACECOL [Concomitant]
  5. BASEN [Concomitant]
  6. ADALAT [Concomitant]
  7. NAIXAN [Concomitant]
  8. CYTOTEC [Concomitant]
  9. GASTER [Concomitant]
  10. FERROGRADUMET [Concomitant]

REACTIONS (7)
  - ALANINE AMINOTRANSFERASE INCREASED [None]
  - ASPARTATE AMINOTRANSFERASE INCREASED [None]
  - DEHYDRATION [None]
  - GENERAL PHYSICAL HEALTH DETERIORATION [None]
  - HEPATIC FUNCTION ABNORMAL [None]
  - RENAL IMPAIRMENT [None]
  - TUMOUR ASSOCIATED FEVER [None]
